FAERS Safety Report 10019085 (Version 1)
Quarter: 2014Q1

REPORT INFORMATION
  Report Type: Spontaneous
  Country: US (occurrence: None)
  Receive Date: 20140314
  Receipt Date: 20140314
  Transmission Date: 20141002
  Serious: Yes (Other)
  Sender: FDA-Public Use
  Company Number: None

PATIENT
  Age: 62 Year
  Sex: Male
  Weight: 63.05 kg

DRUGS (4)
  1. DAPTOMYCIN [Suspect]
     Indication: ENDOCARDITIS
     Route: 042
     Dates: start: 20140221, end: 20140301
  2. DAPTOMYCIN [Suspect]
     Indication: INTERVERTEBRAL DISCITIS
     Route: 042
     Dates: start: 20140221, end: 20140301
  3. DAPTOMYCIN [Suspect]
     Route: 042
     Dates: start: 20140221, end: 20140301
  4. DAPTOMYCIN [Concomitant]

REACTIONS (1)
  - Mental status changes [None]
